FAERS Safety Report 4794412-4 (Version None)
Quarter: 2005Q4

REPORT INFORMATION
  Report Type: 
  Country: None (occurrence: None)
  Receive Date: 20051011
  Receipt Date: 20050930
  Transmission Date: 20060501
  Serious: Yes (Death)
  Sender: FDA-Public Use
  Company Number: NO-ROCHE-419441

PATIENT
  Age: 54 Year
  Sex: Male

DRUGS (8)
  1. VALIUM [Suspect]
     Indication: DRUG USE FOR UNKNOWN INDICATION
     Route: 048
     Dates: start: 20040615
  2. PARALGIN FORTE [Suspect]
     Indication: DRUG USE FOR UNKNOWN INDICATION
     Dosage: CODEINE + PARACETAMOL: 30 + 400 MG DOSAGE REGIMEN REPORTED AS WHEN NEEDED
     Route: 048
     Dates: start: 20040615
  3. PHENERGAN [Suspect]
     Indication: DRUG USE FOR UNKNOWN INDICATION
     Route: 048
     Dates: start: 20040615
  4. SOMAC [Concomitant]
     Route: 048
  5. MUCOMYST [Concomitant]
     Dosage: FORMULATION REPORTED AS EFFERVESCENT TABLETS
  6. VENTOLIN [Concomitant]
     Dosage: FORMULATION REPORTED AS NEBULISER SOLUTION
  7. FLUTIDE [Concomitant]
     Dosage: ROUTE REPORTED AS INHALATION, EITHER POWDER OR PRESSURISED INHALATION
     Route: 055
  8. ATROVENT [Concomitant]
     Dosage: FORMULATION REPORTED AS NEBULISER SOLUTION

REACTIONS (1)
  - RESPIRATORY DEPRESSION [None]
